FAERS Safety Report 5361793-2 (Version None)
Quarter: 2007Q2

REPORT INFORMATION
  Report Type: 
  Country: None (occurrence: None)
  Receive Date: 20070619
  Receipt Date: 20070604
  Transmission Date: 20071010
  Serious: No
  Sender: FDA-Public Use
  Company Number: US-JNJFOC-20070601226

PATIENT
  Sex: Female
  Weight: 73.03 kg

DRUGS (4)
  1. INVEGA [Suspect]
     Indication: BIPOLAR DISORDER
     Route: 048
  2. INVEGA [Suspect]
     Indication: SCHIZOPHRENIA
     Route: 048
  3. LAMICTAL [Concomitant]
     Indication: CONVULSION
     Route: 048
  4. DEPAKOTE ER [Concomitant]
     Indication: CONVULSION
     Route: 048

REACTIONS (2)
  - SALIVARY HYPERSECRETION [None]
  - SENSORY DISTURBANCE [None]
